FAERS Safety Report 5649806-1 (Version None)
Quarter: 2008Q1

REPORT INFORMATION
  Report Type: 
  Country: None (occurrence: None)
  Receive Date: 20080304
  Receipt Date: 20080221
  Transmission Date: 20080703
  Serious: Yes (Other)
  Sender: FDA-Public Use
  Company Number: US-PFIZER INC-2008017514

PATIENT
  Sex: Male

DRUGS (18)
  1. NEURONTIN [Suspect]
     Indication: NEUROPATHY PERIPHERAL
  2. LYRICA [Suspect]
     Indication: NEUROPATHY PERIPHERAL
  3. LUPRON [Concomitant]
  4. CASODEX [Concomitant]
     Dosage: TEXT:50 MG DAILY
  5. MEGESTROL ACETATE [Concomitant]
     Dosage: TEXT:20 MG DAILY
  6. MICARDIS [Concomitant]
     Dosage: TEXT:80 MG DAILY
  7. TOPROL-XL [Concomitant]
     Dosage: TEXT:100 MG DAILY
  8. CLONIDINE [Concomitant]
  9. DETROL LA [Concomitant]
     Dosage: TEXT:2 MG DAILY
  10. CHLORDIAZEPOXIDE [Concomitant]
     Dosage: TEXT:20 MG AS NEEDED
  11. DIAZEPAM [Concomitant]
     Dosage: TEXT:5 MG AS NEEDED
  12. CELEBREX [Concomitant]
     Dosage: TEXT:200 MG DAILY
  13. ULTRAM [Concomitant]
  14. VITAMINS [Concomitant]
  15. NEXIUM [Concomitant]
     Dosage: TEXT:40 MG DAILY
  16. CALCIUM [Concomitant]
  17. CENTRUM [Concomitant]
  18. CRESTOR [Concomitant]
     Dosage: TEXT:10 MG DAILY

REACTIONS (7)
  - BALANCE DISORDER [None]
  - BODY HEIGHT DECREASED [None]
  - COLECTOMY [None]
  - HERNIA [None]
  - OFF LABEL USE [None]
  - POSTOPERATIVE HERNIA [None]
  - WEIGHT INCREASED [None]
